FAERS Safety Report 23082182 (Version 2)
Quarter: 2023Q4

REPORT INFORMATION
  Report Type: Other
  Country: US (occurrence: None)
  Receive Date: 20231019
  Receipt Date: 20231023
  Transmission Date: 20240110
  Serious: Yes (Other)
  Sender: FDA-Public Use
  Company Number: US-ROCHE-3440226

PATIENT

DRUGS (2)
  1. PRALSETINIB [Suspect]
     Active Substance: PRALSETINIB
     Indication: Neoplasm malignant
     Route: 065
  2. SELPERCATINIB [Suspect]
     Active Substance: SELPERCATINIB
     Indication: Neoplasm malignant
     Route: 065

REACTIONS (1)
  - Weight increased [Unknown]
